FAERS Safety Report 23646138 (Version 2)
Quarter: 2025Q1

REPORT INFORMATION
  Report Type: Report from Study
  Country: US (occurrence: US)
  Receive Date: 20240319
  Receipt Date: 20250306
  Transmission Date: 20250408
  Serious: Yes (Other)
  Sender: ACADIA PHARMACEUTICALS
  Company Number: US-ACADIA PHARMACEUTICALS INC.-ACA-2023-PIM-005254

PATIENT
  Sex: Male

DRUGS (21)
  1. NUPLAZID [Suspect]
     Active Substance: PIMAVANSERIN TARTRATE
     Indication: Parkinson^s disease psychosis
     Dosage: 34 MILLIGRAM, QD
     Route: 048
     Dates: start: 20231030
  2. NUPLAZID [Suspect]
     Active Substance: PIMAVANSERIN TARTRATE
     Indication: Parkinson^s disease
     Dosage: 34 MILLIGRAM, QD
     Route: 048
  3. NUPLAZID [Suspect]
     Active Substance: PIMAVANSERIN TARTRATE
     Indication: Hallucination
  4. NUPLAZID [Suspect]
     Active Substance: PIMAVANSERIN TARTRATE
     Indication: Delusion
  5. LIPITOR [Concomitant]
     Active Substance: ATORVASTATIN CALCIUM
  6. ASPIRIN [Concomitant]
     Active Substance: ASPIRIN
  7. TYLENOL [Concomitant]
     Active Substance: ACETAMINOPHEN
  8. VITAMIN C [Concomitant]
     Active Substance: ASCORBIC ACID
  9. ATORVASTATIN [Concomitant]
     Active Substance: ATORVASTATIN
  10. AZITHROMYCIN [Concomitant]
     Active Substance: AZITHROMYCIN
  11. BUDESONIDE [Concomitant]
     Active Substance: BUDESONIDE
  12. CALCITRIOL [Concomitant]
     Active Substance: CALCITRIOL
  13. CALCIUM SULFATE [Concomitant]
     Active Substance: CALCIUM SULFATE
  14. CEFUROXIME [Concomitant]
     Active Substance: CEFUROXIME
  15. DICYCLOMINE [Concomitant]
     Active Substance: DICYCLOMINE HYDROCHLORIDE
  16. FERROUS SULFATE [Concomitant]
     Active Substance: FERROUS SULFATE
  17. IPRATROPIUM [Concomitant]
     Active Substance: IPRATROPIUM
  18. MECOFOL [Concomitant]
  19. METOPROLOL [Concomitant]
     Active Substance: METOPROLOL
  20. OMEPRAZOLE [Concomitant]
     Active Substance: OMEPRAZOLE
  21. VITAMINS [Concomitant]
     Active Substance: VITAMINS

REACTIONS (3)
  - Hallucination, visual [Not Recovered/Not Resolved]
  - Balance disorder [Not Recovered/Not Resolved]
  - Product dose omission issue [Unknown]
